FAERS Safety Report 7768361 (Version 3)
Quarter: 2013Q4

REPORT INFORMATION
  Report Type: Spontaneous
  Country: US (occurrence: None)
  Receive Date: 20101227
  Receipt Date: 20131007
  Transmission Date: 20140711
  Serious: Yes (Hospitalization, Other)
  Sender: FDA-Public Use
  Company Number: ACO_21012_2010

PATIENT
  Age: 32 Year
  Sex: Female

DRUGS (8)
  1. AMPYRA [Suspect]
     Indication: PRODUCT USED FOR UNKNOWN INDICATION
     Dosage: 10 MG, Q 12 HRS
     Dates: start: 20101013, end: 20101116
  2. PROZAC [Concomitant]
  3. BUPROPION HYDROCHLORIDE [Concomitant]
  4. BACLOFEN [Concomitant]
  5. MOBIC [Concomitant]
  6. DETROL (TOLTERODINE L-TARTRATE) [Concomitant]
  7. COPAXONE /01410902/ (GLATIRAMER ACETATE) [Concomitant]
  8. TRAMADOL HYDROCHLORIDE [Concomitant]

REACTIONS (3)
  - Grand mal convulsion [None]
  - Memory impairment [None]
  - Urinary tract infection [None]
